FAERS Safety Report 24398732 (Version 3)
Quarter: 2024Q4

REPORT INFORMATION
  Report Type: Spontaneous
  Country: FR (occurrence: FR)
  Receive Date: 20241004
  Receipt Date: 20241018
  Transmission Date: 20250115
  Serious: Yes (Death, Other)
  Sender: ABBVIE
  Company Number: FR-ABBVIE-5950668

PATIENT
  Age: 73 Year
  Sex: Male
  Weight: 70 kg

DRUGS (5)
  1. DEPAKOTE [Suspect]
     Active Substance: DIVALPROEX SODIUM
     Indication: Aggression
     Dosage: THERAPY DURATION: 6 DAYS
     Route: 048
     Dates: start: 20240730, end: 20240805
  2. AMISULPRIDE [Suspect]
     Active Substance: AMISULPRIDE
     Indication: Behaviour disorder
     Route: 048
     Dates: end: 20240805
  3. OXAZEPAM [Suspect]
     Active Substance: OXAZEPAM
     Indication: Agitation
     Dosage: PRN
     Route: 048
     Dates: end: 20240808
  4. LOXAPINE [Suspect]
     Active Substance: LOXAPINE
     Indication: Agitation
     Dosage: PRN
     Route: 048
     Dates: end: 20240808
  5. DIAZEPAM [Suspect]
     Active Substance: DIAZEPAM
     Indication: Mixed anxiety and depressive disorder
     Route: 048
     Dates: end: 20240817

REACTIONS (1)
  - Encephalopathy [Fatal]

NARRATIVE: CASE EVENT DATE: 20240802
